FAERS Safety Report 18673841 (Version 5)
Quarter: 2021Q1

REPORT INFORMATION
  Report Type: Report from Study
  Country: AR (occurrence: AR)
  Receive Date: 20201229
  Receipt Date: 20210309
  Transmission Date: 20210419
  Serious: Yes (Life-Threatening, Hospitalization, Other)
  Sender: FDA-Public Use
  Company Number: AR-TAKEDA-2020TUS060592

PATIENT
  Age: 3 Year
  Sex: Male
  Weight: 15 kg

DRUGS (9)
  1. ADVATE [Suspect]
     Active Substance: ANTIHEMOPHILIC FACTOR, HUMAN RECOMBINANT
     Indication: FACTOR VIII DEFICIENCY
     Dosage: 500 INTERNATIONAL UNIT, 3/WEEK
     Route: 042
     Dates: start: 20201221
  2. ADVATE [Suspect]
     Active Substance: ANTIHEMOPHILIC FACTOR, HUMAN RECOMBINANT
     Indication: FACTOR VIII DEFICIENCY
     Dosage: 500 INTERNATIONAL UNIT, 3/WEEK
     Route: 042
     Dates: start: 20201221
  3. ADVATE [Suspect]
     Active Substance: ANTIHEMOPHILIC FACTOR, HUMAN RECOMBINANT
     Dosage: 1000 INTERNATIONAL UNIT, Q12H
     Route: 065
  4. ADVATE [Suspect]
     Active Substance: ANTIHEMOPHILIC FACTOR, HUMAN RECOMBINANT
     Dosage: 1000 INTERNATIONAL UNIT, Q12H
     Route: 065
  5. ADVATE [Suspect]
     Active Substance: ANTIHEMOPHILIC FACTOR, HUMAN RECOMBINANT
     Dosage: 500 INTERNATIONAL UNIT, 3/WEEK
     Route: 042
     Dates: start: 20210105
  6. ADVATE [Suspect]
     Active Substance: ANTIHEMOPHILIC FACTOR, HUMAN RECOMBINANT
     Indication: FACTOR VIII DEFICIENCY
     Dosage: 500 INTERNATIONAL UNIT, 3/WEEK
     Route: 042
     Dates: start: 20201221
  7. ADVATE [Suspect]
     Active Substance: ANTIHEMOPHILIC FACTOR, HUMAN RECOMBINANT
     Dosage: 500 INTERNATIONAL UNIT, 3/WEEK
     Route: 042
     Dates: start: 20210105
  8. ADVATE [Suspect]
     Active Substance: ANTIHEMOPHILIC FACTOR, HUMAN RECOMBINANT
     Dosage: 1000 INTERNATIONAL UNIT, Q12H
     Route: 065
  9. ADVATE [Suspect]
     Active Substance: ANTIHEMOPHILIC FACTOR, HUMAN RECOMBINANT
     Dosage: 500 INTERNATIONAL UNIT, 3/WEEK
     Route: 042
     Dates: start: 20210105

REACTIONS (7)
  - CSF volume increased [Not Recovered/Not Resolved]
  - Subdural haematoma [Recovering/Resolving]
  - Surgery [Unknown]
  - Seizure [Unknown]
  - Somnolence [Unknown]
  - Cerebral haemorrhage [Unknown]
  - Dehydration [Recovered/Resolved]

NARRATIVE: CASE EVENT DATE: 20201220
